FAERS Safety Report 8493355-2 (Version None)
Quarter: 2012Q3

REPORT INFORMATION
  Report Type: 
  Country: None (occurrence: None)
  Receive Date: 20120706
  Receipt Date: 20120625
  Transmission Date: 20120928
  Serious: Yes (Hospitalization, Other)
  Sender: FDA-Public Use
  Company Number: US-ELI_LILLY_AND_COMPANY-US201206008805

PATIENT
  Sex: Male

DRUGS (2)
  1. LEVEMIR [Concomitant]
     Dosage: UNK, EACH EVENING
  2. HUMULIN R [Suspect]
     Indication: DIABETES MELLITUS
     Dosage: UNK UNK, PRN
     Dates: start: 20120501

REACTIONS (2)
  - CONVULSION [None]
  - BLOOD GLUCOSE FLUCTUATION [None]
